FAERS Safety Report 5951233-4 (Version None)
Quarter: 2008Q4

REPORT INFORMATION
  Report Type: 
  Country: None (occurrence: None)
  Receive Date: 20081112
  Receipt Date: 20081112
  Transmission Date: 20090506
  Serious: Yes (Hospitalization)
  Sender: FDA-Public Use
  Company Number: None

PATIENT
  Sex: Male
  Weight: 85.5 kg

DRUGS (1)
  1. CISPLATIN [Suspect]
     Dosage: 175 MG
     Dates: end: 20081104

REACTIONS (10)
  - BACK PAIN [None]
  - BACTERIA URINE IDENTIFIED [None]
  - BLOOD SODIUM DECREASED [None]
  - DYSPNOEA EXERTIONAL [None]
  - FLANK PAIN [None]
  - INTERVERTEBRAL DISC DEGENERATION [None]
  - RED BLOOD CELLS URINE POSITIVE [None]
  - RENAL CYST [None]
  - RENAL FAILURE ACUTE [None]
  - WHITE BLOOD CELLS URINE POSITIVE [None]
